FAERS Safety Report 5402719-2 (Version None)
Quarter: 2007Q3

REPORT INFORMATION
  Report Type: 
  Country: None (occurrence: None)
  Receive Date: 20070801
  Receipt Date: 20070727
  Transmission Date: 20080115
  Serious: Yes (Other)
  Sender: FDA-Public Use
  Company Number: D0054145A

PATIENT
  Sex: Female

DRUGS (2)
  1. ARIXTRA [Suspect]
     Indication: DEEP VEIN THROMBOSIS
     Route: 058
     Dates: start: 20070713
  2. CLEXANE [Concomitant]
     Indication: DEEP VEIN THROMBOSIS
     Route: 065

REACTIONS (2)
  - PLATELET COUNT ABNORMAL [None]
  - THROMBOCYTHAEMIA [None]
